FAERS Safety Report 5947549-8 (Version None)
Quarter: 2008Q4

REPORT INFORMATION
  Report Type: 
  Country: None (occurrence: None)
  Receive Date: 20081110
  Receipt Date: 20081103
  Transmission Date: 20090506
  Serious: Yes (Hospitalization)
  Sender: FDA-Public Use
  Company Number: PHHO2008NL10737

PATIENT
  Sex: Female

DRUGS (6)
  1. BLINDED NO TREATMENT RECEIVED NOMED [Suspect]
     Indication: CARCINOID TUMOUR
     Dosage: DOUBLE BLIND
     Route: 048
     Dates: start: 20070629, end: 20080827
  2. BLINDED PLACEBO COMP-PLA+ [Suspect]
     Indication: CARCINOID TUMOUR
     Dosage: DOUBLE BLIND
     Route: 048
     Dates: start: 20070629, end: 20080827
  3. BLINDED RAD 666 RAD+TAB [Suspect]
     Indication: CARCINOID TUMOUR
     Dosage: DOUBLE BLIND
     Route: 048
     Dates: start: 20070629, end: 20080827
  4. SANDOSTATIN LAR [Concomitant]
     Indication: CARCINOID SYNDROME
     Dosage: UNK
     Dates: start: 20070702
  5. ACETAMINOPHEN [Concomitant]
  6. TEMAZEPAM [Concomitant]

REACTIONS (5)
  - ABDOMINAL WALL ABSCESS [None]
  - ABSCESS DRAINAGE [None]
  - FISTULA [None]
  - PYREXIA [None]
  - TUMOUR NECROSIS [None]
